FAERS Safety Report 17586002 (Version 1)
Quarter: 2020Q1

REPORT INFORMATION
  Report Type: Spontaneous
  Country: US (occurrence: US)
  Receive Date: 20200326
  Receipt Date: 20200326
  Transmission Date: 20200409
  Serious: No
  Sender: FDA-Public Use
  Company Number: None

PATIENT
  Sex: Female

DRUGS (13)
  1. POT CHLORIDE CAP [Concomitant]
  2. METHOTREXATE. [Concomitant]
     Active Substance: METHOTREXATE
  3. TRAMADOL HCL TAB [Concomitant]
  4. DICYCLOMINE CAP [Concomitant]
  5. EXCEDRIN [Concomitant]
     Active Substance: ACETAMINOPHEN\ASPIRIN\CAFFEINE
  6. AMLODIPINE [Concomitant]
     Active Substance: AMLODIPINE BESYLATE
  7. FOLIC ACID. [Concomitant]
     Active Substance: FOLIC ACID
  8. VITAMIN D CAP [Concomitant]
  9. METOPROL SUC TAB [Concomitant]
  10. MULTI VITAMIN TAB [Concomitant]
  11. HUMIRA [Suspect]
     Active Substance: ADALIMUMAB
     Dosage: ?          OTHER FREQUENCY:EVERY TWO WEEKS;?
     Route: 058
  12. IBUPROFEN TAB [Concomitant]
  13. PANTOPRAZOLE TAB [Concomitant]

REACTIONS (1)
  - Nausea [None]
